FAERS Safety Report 5912496-4 (Version None)
Quarter: 2008Q4

REPORT INFORMATION
  Report Type: 
  Country: None (occurrence: None)
  Receive Date: 20081007
  Receipt Date: 20081007
  Transmission Date: 20090506
  Serious: Yes (Other)
  Sender: FDA-Public Use
  Company Number: None

PATIENT
  Sex: Male
  Weight: 52 kg

DRUGS (26)
  1. XOLAIR [Suspect]
     Indication: ASTHMA
     Dosage: 300 MG ONCE SQ
     Route: 058
     Dates: start: 20080929, end: 20080929
  2. ALBUTEROL [Concomitant]
  3. ADEK VITAMINS [Concomitant]
  4. PULMICORT-100 [Concomitant]
  5. CALCIUM CARBONATE [Concomitant]
  6. CETIRIZINE HCL [Concomitant]
  7. DIPHENHYDRAMINE HCL [Concomitant]
  8. DORNASE ALPHA NEBULIZED [Concomitant]
  9. ERYTHROMYCIN ETHYLSUCCINATE [Concomitant]
  10. HYDROCORTISONE [Concomitant]
  11. IPRATROPIUM BROMIDE [Concomitant]
  12. FERROUS SULFATE [Concomitant]
  13. MONTELUKAST SODIUM [Concomitant]
  14. PANCREALIPASE [Concomitant]
  15. PHYTONADIONE [Concomitant]
  16. RHINOCORT [Concomitant]
  17. TOBRAMYCIN [Concomitant]
  18. UROSODIOL [Concomitant]
  19. VORICONAZOLE [Concomitant]
  20. AZITROMYCIN [Concomitant]
  21. CEFTAZIDIME [Concomitant]
  22. PROTONIX [Concomitant]
  23. TYLENOL (CAPLET) [Concomitant]
  24. NAPROSYN [Concomitant]
  25. HEPARIN LOCK-FLUSH [Concomitant]
  26. HYDROCORTISONE [Concomitant]

REACTIONS (3)
  - HAEMOPTYSIS [None]
  - PETECHIAE [None]
  - PLATELET COUNT DECREASED [None]
